FAERS Safety Report 21774797 (Version 1)
Quarter: 2022Q4

REPORT INFORMATION
  Report Type: Spontaneous
  Country: BG (occurrence: BG)
  Receive Date: 20221224
  Receipt Date: 20221224
  Transmission Date: 20230113
  Serious: Yes (Other)
  Sender: FDA-Public Use
  Company Number: BG-AMGEN-BGRSP2022217985

PATIENT
  Age: 59 Year

DRUGS (4)
  1. XGEVA [Suspect]
     Active Substance: DENOSUMAB
     Indication: Product used for unknown indication
     Dosage: UNK
     Route: 065
     Dates: start: 201904, end: 202011
  2. XGEVA [Suspect]
     Active Substance: DENOSUMAB
     Dosage: UNK
     Route: 065
     Dates: start: 202011, end: 202210
  3. SUTENT [Concomitant]
     Active Substance: SUNITINIB MALATE
     Dosage: UNK
     Route: 065
     Dates: start: 201904, end: 202011
  4. INLYTA [Concomitant]
     Active Substance: AXITINIB
     Dosage: UNK
     Dates: start: 202011, end: 202210

REACTIONS (1)
  - Renal cancer metastatic [Unknown]

NARRATIVE: CASE EVENT DATE: 20201101
